FAERS Safety Report 21734722 (Version 1)
Quarter: 2022Q4

REPORT INFORMATION
  Report Type: Spontaneous
  Country: FR (occurrence: FR)
  Receive Date: 20221215
  Receipt Date: 20221215
  Transmission Date: 20230112
  Serious: Yes (Other)
  Sender: FDA-Public Use
  Company Number: None

PATIENT
  Age: 60 Year
  Sex: Male

DRUGS (2)
  1. METHOTREXATE [Suspect]
     Active Substance: METHOTREXATE
     Indication: Ankylosing spondylitis
     Dosage: UNIT DOSE : 15 MG , FREQUENCY TIME : 1 DAY
     Dates: start: 202112, end: 20211223
  2. HUMIRA [Suspect]
     Active Substance: ADALIMUMAB
     Indication: Ankylosing spondylitis
     Dosage: UNIT DOSE :  1 DF , FREQUENCY TIME : 1 TOTAL  , DURATION : 1 DAY
     Dates: start: 20211215, end: 20211215

REACTIONS (5)
  - Neutropenia [Recovering/Resolving]
  - Hepatocellular injury [Recovered/Resolved]
  - Aphthous ulcer [Recovering/Resolving]
  - Wrong dose [Recovered/Resolved]
  - Thrombocytosis [Not Recovered/Not Resolved]

NARRATIVE: CASE EVENT DATE: 20211201
